FAERS Safety Report 5228641-2 (Version None)
Quarter: 2007Q1

REPORT INFORMATION
  Report Type: 
  Country: None (occurrence: None)
  Receive Date: 20070205
  Receipt Date: 20070201
  Transmission Date: 20070707
  Serious: Yes (Other)
  Sender: FDA-Public Use
  Company Number: US-GLAXOSMITHKLINE-A0630642A

PATIENT
  Age: 74 Year
  Sex: Male

DRUGS (5)
  1. ADVAIR DISKUS 100/50 [Suspect]
     Indication: CHRONIC OBSTRUCTIVE PULMONARY DISEASE
     Dosage: 2PUFF TWICE PER DAY
     Route: 055
     Dates: start: 20061101
  2. ATENOLOL [Concomitant]
  3. PREVACID [Concomitant]
  4. VYTORIN [Concomitant]
  5. ASPIRIN [Concomitant]

REACTIONS (7)
  - CALCULUS BLADDER [None]
  - DYSPHONIA [None]
  - PAIN [None]
  - PROSTATE EXAMINATION ABNORMAL [None]
  - URINARY INCONTINENCE [None]
  - URINARY RETENTION [None]
  - URINARY TRACT OBSTRUCTION [None]
